FAERS Safety Report 18218203 (Version 1)
Quarter: 2020Q3

REPORT INFORMATION
  Report Type: Spontaneous
  Country: US (occurrence: US)
  Receive Date: 20200831
  Receipt Date: 20200831
  Transmission Date: 20201103
  Serious: Yes (Hospitalization)
  Sender: FDA-Public Use
  Company Number: None

PATIENT
  Age: 58 Year
  Sex: Male

DRUGS (1)
  1. REVLIMID [Suspect]
     Active Substance: LENALIDOMIDE
     Indication: PLASMA CELL MYELOMA
     Route: 048
     Dates: start: 20160307, end: 20200802

REACTIONS (9)
  - Dyspnoea [None]
  - Angioedema [None]
  - Urticaria [None]
  - Pyrexia [None]
  - Chills [None]
  - Swollen tongue [None]
  - Therapy cessation [None]
  - Pharyngeal swelling [None]
  - Lethargy [None]

NARRATIVE: CASE EVENT DATE: 20200802
